FAERS Safety Report 4888074-5 (Version None)
Quarter: 2006Q1

REPORT INFORMATION
  Report Type: 
  Country: None (occurrence: None)
  Receive Date: 20060119
  Receipt Date: 20060105
  Transmission Date: 20060701
  Serious: Yes (Disabling)
  Sender: FDA-Public Use
  Company Number: 2006007494

PATIENT
  Age: 38 Year
  Sex: Female

DRUGS (3)
  1. CELEBREX [Suspect]
     Indication: MUSCULOSKELETAL DISORDER
     Dates: start: 20030101
  2. BEXTRA [Suspect]
     Indication: MUSCULOSKELETAL DISORDER
     Dates: start: 20030101
  3. VIOXX [Suspect]
     Indication: MUSCULOSKELETAL DISORDER
     Dates: start: 20030101

REACTIONS (14)
  - ACTIVITIES OF DAILY LIVING IMPAIRED [None]
  - ANHEDONIA [None]
  - APPETITE DISORDER [None]
  - ASTHENIA [None]
  - CARDIOVASCULAR DISORDER [None]
  - CHEST PAIN [None]
  - DEPRESSION [None]
  - DIFFICULTY IN WALKING [None]
  - EMOTIONAL DISORDER [None]
  - FATIGUE [None]
  - HYPOAESTHESIA [None]
  - MOVEMENT DISORDER [None]
  - OEDEMA PERIPHERAL [None]
  - PAIN [None]
